FAERS Safety Report 8155573 (Version 3)
Quarter: 2014Q2

REPORT INFORMATION
  Report Type: Spontaneous
  Country: SE (occurrence: SE)
  Receive Date: 20110926
  Receipt Date: 20140627
  Transmission Date: 20141212
  Serious: Yes (Death, Hospitalization)
  Sender: FDA-Public Use
  Company Number: SE-BRISTOL-MYERS SQUIBB COMPANY-16064966

PATIENT
  Age: 59 Year
  Sex: Male

DRUGS (26)
  1. BIKLIN INJ [Suspect]
     Indication: BACK PAIN
     Dates: start: 201105, end: 20110530
  2. COLCHICINE [Suspect]
     Indication: GOUTY ARTHRITIS
     Dosage: TABS
     Route: 048
     Dates: start: 20110427, end: 20110530
  3. KLACID [Suspect]
     Indication: MYCOBACTERIAL INFECTION
     Dosage: TABS
     Route: 048
     Dates: start: 20110519, end: 20110530
  4. TAVANIC [Suspect]
     Indication: MYCOBACTERIAL INFECTION
     Dates: start: 20110519, end: 20110530
  5. FLUCONAZOLE [Suspect]
     Dates: start: 201105, end: 201105
  6. LYRICA [Concomitant]
     Dosage: HARD CAPSULE
  7. WARAN [Concomitant]
     Dosage: TABS
  8. PREDNISOLONE [Concomitant]
  9. ALFUZOSIN [Concomitant]
  10. OMEPRAZOLE [Concomitant]
  11. OXYCODONE [Concomitant]
  12. FOLACIN [Concomitant]
  13. DIGOXIN [Concomitant]
  14. BURINEX [Concomitant]
  15. VENTOLINE [Concomitant]
  16. ATROVENT [Concomitant]
  17. FURIX [Concomitant]
  18. HUMULIN REGULAR [Concomitant]
  19. KETOGAN NOVUM [Concomitant]
  20. HUMALOG [Concomitant]
  21. SPIRONOLACTONE [Concomitant]
  22. ACETYLCYSTEINE [Concomitant]
  23. IDEOS [Concomitant]
  24. CITALOPRAM [Concomitant]
  25. CILAXORAL [Concomitant]
  26. SYMBICORT [Concomitant]

REACTIONS (14)
  - Cardiac arrest [Fatal]
  - Agranulocytosis [Fatal]
  - Sepsis [Fatal]
  - Dyspnoea [Unknown]
  - Hypotension [Unknown]
  - Tachycardia [Unknown]
  - Back pain [Unknown]
  - Diarrhoea [Unknown]
  - Drug interaction [None]
  - Drug effect decreased [None]
  - Bone marrow failure [None]
  - Multi-organ failure [None]
  - Drug level increased [None]
  - Toxicity to various agents [None]
